FAERS Safety Report 10644513 (Version 4)
Quarter: 2015Q1

REPORT INFORMATION
  Report Type: Spontaneous
  Country: US (occurrence: US)
  Receive Date: 20141210
  Receipt Date: 20150120
  Transmission Date: 20150720
  Serious: Yes (Hospitalization, Other)
  Sender: FDA-Public Use
  Company Number: US-GILEAD-2014-0126445

PATIENT
  Age: 47 Year
  Sex: Male

DRUGS (5)
  1. SILDENAFIL CITRATE. [Concomitant]
     Active Substance: SILDENAFIL CITRATE
  2. LETAIRIS [Suspect]
     Active Substance: AMBRISENTAN
     Indication: PRODUCT USED FOR UNKNOWN INDICATION
     Dosage: 10 MG, QD
     Route: 065
     Dates: start: 20140609
  3. LETAIRIS [Suspect]
     Active Substance: AMBRISENTAN
     Dates: start: 20130718
  4. REVATIO [Concomitant]
     Active Substance: SILDENAFIL CITRATE
  5. TYVASO [Suspect]
     Active Substance: TREPROSTINIL
     Indication: PRODUCT USED FOR UNKNOWN INDICATION
     Route: 065

REACTIONS (5)
  - Malaise [Unknown]
  - Mental status changes [Unknown]
  - Loss of consciousness [Unknown]
  - Somnolence [Unknown]
  - Syncope [Unknown]
